FAERS Safety Report 17728750 (Version 1)
Quarter: 2020Q2

REPORT INFORMATION
  Report Type: Spontaneous
  Country: FR (occurrence: FR)
  Receive Date: 20200430
  Receipt Date: 20200430
  Transmission Date: 20200714
  Serious: Yes (Hospitalization, Other)
  Sender: FDA-Public Use
  Company Number: FR-BRISTOL-MYERS SQUIBB COMPANY-BMS-2020-034328

PATIENT
  Age: 67 Year
  Sex: Female
  Weight: 51 kg

DRUGS (1)
  1. OPDIVO [Suspect]
     Active Substance: NIVOLUMAB
     Indication: LUNG ADENOCARCINOMA
     Dosage: PAR CURE
     Route: 041
     Dates: start: 20170615, end: 20190808

REACTIONS (3)
  - Polyarthritis [Recovered/Resolved with Sequelae]
  - Hypophysitis [Recovered/Resolved with Sequelae]
  - Cholangitis [Recovered/Resolved with Sequelae]

NARRATIVE: CASE EVENT DATE: 20180125
